FAERS Safety Report 6064640-9 (Version None)
Quarter: 2009Q1

REPORT INFORMATION
  Report Type: 
  Country: None (occurrence: None)
  Receive Date: 20090204
  Receipt Date: 20080425
  Transmission Date: 20090719
  Serious: No
  Sender: FDA-Public Use
  Company Number: A0709117A

PATIENT
  Age: 58 Year
  Sex: Male

DRUGS (11)
  1. ARIXTRA [Suspect]
     Indication: DEEP VEIN THROMBOSIS
     Dosage: 10MG PER DAY
     Route: 058
     Dates: start: 20080209
  2. PROTONIX [Concomitant]
  3. HYOSCYAMINE [Concomitant]
  4. FOLACIN [Concomitant]
  5. GLIPIZIDE [Concomitant]
  6. WELCHOL [Concomitant]
  7. LOTREL [Concomitant]
  8. VYTORIN [Concomitant]
  9. AMBIEN [Concomitant]
  10. KLONOPIN [Concomitant]
  11. DARVOCET [Concomitant]

REACTIONS (4)
  - BLOOD PRESSURE DECREASED [None]
  - DIZZINESS [None]
  - MICTURITION URGENCY [None]
  - URINARY TRACT INFECTION [None]
